FAERS Safety Report 12395428 (Version 2)
Quarter: 2017Q2

REPORT INFORMATION
  Report Type: Spontaneous
  Country: US (occurrence: US)
  Receive Date: 20160523
  Receipt Date: 20170510
  Transmission Date: 20170830
  Serious: Yes (Hospitalization)
  Sender: FDA-Public Use
  Company Number: US-MYLANLABS-2016M1021243

PATIENT

DRUGS (1)
  1. CLOZAPINE. [Suspect]
     Active Substance: CLOZAPINE
     Indication: SCHIZOPHRENIA
     Dosage: 300 MG AT BEDTIME
     Route: 065

REACTIONS (4)
  - Salivary hypersecretion [Recovering/Resolving]
  - Pneumonia necrotising [Recovering/Resolving]
  - Toxicity to various agents [Recovering/Resolving]
  - Pneumonia [Recovering/Resolving]
